FAERS Safety Report 10574095 (Version 2)
Quarter: 2014Q4

REPORT INFORMATION
  Report Type: Report from Study
  Country: CA (occurrence: CA)
  Receive Date: 20141110
  Receipt Date: 20141110
  Transmission Date: 20150529
  Serious: Yes (Other)
  Sender: FDA-Public Use
  Company Number: CA-JNJFOC-20140916682

PATIENT
  Age: 13 Year
  Sex: Male
  Weight: 35.1 kg

DRUGS (6)
  1. REMICADE [Suspect]
     Active Substance: INFLIXIMAB
     Indication: CROHN^S DISEASE
     Route: 042
     Dates: start: 20140613
  2. IMURAN [Concomitant]
     Active Substance: AZATHIOPRINE
     Route: 065
  3. METHOTREXATE [Concomitant]
     Active Substance: METHOTREXATE
     Dosage: EVERY FRIDAY
     Route: 065
  4. PALAFER [Concomitant]
     Active Substance: FERROUS FUMARATE
     Route: 065
  5. FOLIC ACID. [Concomitant]
     Active Substance: FOLIC ACID
     Dosage: SATURDAY TO TUESDAY
     Route: 065
  6. REMICADE [Suspect]
     Active Substance: INFLIXIMAB
     Indication: CROHN^S DISEASE
     Route: 042
     Dates: start: 201406

REACTIONS (3)
  - Clostridium difficile infection [Recovering/Resolving]
  - Small intestinal stenosis [Recovering/Resolving]
  - Enterovirus infection [Recovering/Resolving]

NARRATIVE: CASE EVENT DATE: 20140922
